FAERS Safety Report 8693828 (Version 2)
Quarter: 2013Q1

REPORT INFORMATION
  Report Type: Spontaneous
  Country: US (occurrence: US)
  Receive Date: 20120731
  Receipt Date: 20130131
  Transmission Date: 20140127
  Serious: Yes (Hospitalization, Other)
  Sender: FDA-Public Use
  Company Number: US-BAYER-2012-074377

PATIENT
  Age: 19 Year
  Sex: Female
  Weight: 53.97 kg

DRUGS (7)
  1. YAZ [Suspect]
     Indication: CONTRACEPTION
     Dosage: UNK
     Dates: start: 201108, end: 201203
  2. GIANVI [Suspect]
     Indication: CONTRACEPTION
     Dosage: UNK
     Dates: start: 201108, end: 201203
  3. NAPROXEN [Concomitant]
     Dosage: 550 MG, UNK
     Route: 048
  4. ORAL CONTRACEPTIVE NOS [Concomitant]
  5. TORADOL [Concomitant]
  6. MORPHINE [Concomitant]
     Indication: PAIN
  7. ZOFRAN [Concomitant]
     Indication: NAUSEA

REACTIONS (10)
  - Pulmonary embolism [None]
  - Deep vein thrombosis [None]
  - Cerebrovascular accident [None]
  - Gallbladder disorder [None]
  - Myocardial infarction [None]
  - Injury [None]
  - Pain [None]
  - Pain [None]
  - Chest pain [None]
  - Chest discomfort [None]
